FAERS Safety Report 22601348 (Version 1)
Quarter: 2023Q2

REPORT INFORMATION
  Report Type: Spontaneous
  Country: US (occurrence: None)
  Receive Date: 20230613
  Receipt Date: 20230613
  Transmission Date: 20230721
  Serious: No
  Sender: FDA-Public Use
  Company Number: None

PATIENT
  Sex: Male

DRUGS (3)
  1. PREDNISONE [Suspect]
     Active Substance: PREDNISONE
     Indication: Prostate cancer
     Dosage: OTHER QUANTITY : 1T;?FREQUENCY : DAILY;?OTHER ROUTE : PO WITH FOOD;?
     Route: 050
     Dates: start: 202305
  2. ABIRATERONE ACETATE [Suspect]
     Active Substance: ABIRATERONE ACETATE
     Indication: Prostate cancer
     Dosage: OTHER QUANTITY : 4T;?FREQUENCY : DAILY;?OTHER ROUTE : PO ON EMPTY STOMACH;?
     Route: 050
     Dates: start: 202305
  3. TRAZODONE [Concomitant]
     Active Substance: TRAZODONE HYDROCHLORIDE

REACTIONS (4)
  - Abdominal pain [None]
  - Liver function test increased [None]
  - Vision blurred [None]
  - Dizziness [None]
